FAERS Safety Report 7931549-2 (Version None)
Quarter: 2011Q4

REPORT INFORMATION
  Report Type: 
  Country: None (occurrence: None)
  Receive Date: 20111121
  Receipt Date: 20111110
  Transmission Date: 20120403
  Serious: Yes (Hospitalization)
  Sender: FDA-Public Use
  Company Number: US-BAYER-2011-102423

PATIENT
  Age: 24 Year
  Sex: Female
  Weight: 63 kg

DRUGS (2)
  1. YASMIN [Suspect]
     Dosage: UNK
     Dates: start: 20030101, end: 20040101
  2. NOROXIN [Concomitant]

REACTIONS (1)
  - DEEP VEIN THROMBOSIS [None]
